FAERS Safety Report 10568990 (Version 1)
Quarter: 2014Q4

REPORT INFORMATION
  Report Type: Spontaneous
  Country: US (occurrence: US)
  Receive Date: 20141106
  Receipt Date: 20141106
  Transmission Date: 20150529
  Serious: Yes (Other)
  Sender: FDA-Public Use
  Company Number: US-BAYER-2014-161559

PATIENT
  Age: 63 Year
  Sex: Female
  Weight: 93 kg

DRUGS (6)
  1. NORVASC [Concomitant]
     Active Substance: AMLODIPINE BESYLATE
  2. HYDROCHLOROTHIAZIDE. [Concomitant]
     Active Substance: HYDROCHLOROTHIAZIDE
  3. LORAZEPAM. [Concomitant]
     Active Substance: LORAZEPAM
  4. PHILLIPS^ FIBER GOOD GUMMIES [Suspect]
     Active Substance: INULIN
     Indication: SLEEP DISORDER THERAPY
     Dosage: 2-3 DF
     Route: 048
     Dates: start: 20141026
  5. BAYER GENUINE ASPIRIN [Suspect]
     Active Substance: ASPIRIN
     Indication: SLEEP DISORDER THERAPY
     Route: 048
  6. SINGULAIR [Concomitant]
     Active Substance: MONTELUKAST SODIUM

REACTIONS (7)
  - Fatigue [Recovered/Resolved]
  - Asthma [Recovered/Resolved]
  - Dyspnoea [Recovered/Resolved]
  - Somnolence [Recovered/Resolved]
  - Intentional product misuse [Recovered/Resolved]
  - Lethargy [Recovered/Resolved]
  - Wheezing [Recovered/Resolved]

NARRATIVE: CASE EVENT DATE: 20141026
